FAERS Safety Report 4931994-3 (Version None)
Quarter: 2006Q1

REPORT INFORMATION
  Report Type: 
  Country: None (occurrence: None)
  Receive Date: 20060303
  Receipt Date: 20060118
  Transmission Date: 20060701
  Serious: No
  Sender: FDA-Public Use
  Company Number: JP-JPN-A200600249

PATIENT
  Age: 28 Year
  Sex: Female

DRUGS (7)
  1. PAXIL [Suspect]
     Indication: OBSESSIVE-COMPULSIVE DISORDER
     Route: 048
     Dates: start: 20051012
  2. AKINETON [Suspect]
     Indication: PARKINSONISM
     Dosage: 2MG TWICE PER DAY
     Route: 048
  3. RISPERDAL [Suspect]
     Indication: OBSESSIVE-COMPULSIVE DISORDER
     Route: 048
  4. ROHYPNOL [Suspect]
     Indication: OBSESSIVE-COMPULSIVE DISORDER
     Dosage: 1MG PER DAY
     Route: 048
  5. METLIGINE [Concomitant]
     Indication: OBSESSIVE-COMPULSIVE DISORDER
     Route: 048
  6. LEXOTAN [Concomitant]
     Indication: OBSESSIVE-COMPULSIVE DISORDER
     Dosage: 8MG PER DAY
     Route: 048
  7. GOSHA-JINKI-GAN [Concomitant]

REACTIONS (1)
  - ENURESIS [None]
